FAERS Safety Report 11613799 (Version 1)
Quarter: 2015Q4

REPORT INFORMATION
  Report Type: Other
  Country: DE (occurrence: DE)
  Receive Date: 20151008
  Receipt Date: 20151008
  Transmission Date: 20160304
  Serious: Yes (Life-Threatening, Disabling)
  Sender: FDA-Public Use
  Company Number: DE-MYLANLABS-2015M1032979

PATIENT

DRUGS (9)
  1. RISPERIDON [Suspect]
     Active Substance: RISPERIDONE
     Dosage: 1 MG, QD
     Dates: start: 20141110, end: 20141111
  2. RISPERIDON [Suspect]
     Active Substance: RISPERIDONE
     Dosage: 2 MG, QD
     Dates: start: 20141112
  3. VITAMIN B12 [Concomitant]
     Active Substance: CYANOCOBALAMIN
     Dosage: UNK
  4. VITAMIN B12 [Concomitant]
     Active Substance: CYANOCOBALAMIN
     Dosage: 1000 ?G, UNK
     Route: 048
     Dates: start: 20140822
  5. RISPERIDON [Suspect]
     Active Substance: RISPERIDONE
     Dosage: 3 MG, QD
     Dates: start: 20141113, end: 20141114
  6. VITAMIN B12 [Concomitant]
     Active Substance: CYANOCOBALAMIN
     Dosage: 1000 ?G, QD
     Route: 048
     Dates: start: 20140825
  7. VITAMIN B12 [Concomitant]
     Active Substance: CYANOCOBALAMIN
     Dosage: 1000 ?G, QD
     Route: 048
     Dates: start: 20140821
  8. RISPERIDON [Concomitant]
     Active Substance: RISPERIDONE
     Dosage: 3 MG, QD
     Route: 048
  9. RISPERIDON [Suspect]
     Active Substance: RISPERIDONE
     Dosage: 3 MG, QD
     Dates: start: 20141114

REACTIONS (5)
  - Aphasia [Recovering/Resolving]
  - Embolism [Recovering/Resolving]
  - Deep vein thrombosis [Recovering/Resolving]
  - Cerebral ischaemia [Recovering/Resolving]
  - Hemiparesis [Recovering/Resolving]

NARRATIVE: CASE EVENT DATE: 20141114
